FAERS Safety Report 5508399-X (Version None)
Quarter: 2007Q4

REPORT INFORMATION
  Report Type: 
  Country: None (occurrence: None)
  Receive Date: 20071107
  Receipt Date: 20071102
  Transmission Date: 20080405
  Serious: Yes (Other)
  Sender: FDA-Public Use
  Company Number: PHEH2007US07212

PATIENT
  Age: 57 Year
  Sex: Male
  Weight: 99.319 kg

DRUGS (3)
  1. DIOVAN [Suspect]
     Indication: HYPERTENSION
     Dosage: 160 MG, QD
     Route: 048
     Dates: start: 20070221, end: 20070301
  2. VIAGRA [Concomitant]
     Dosage: UNK, UNK
  3. ASPIRIN [Concomitant]
     Dosage: UNK, UNK

REACTIONS (4)
  - BLOOD CREATINE PHOSPHOKINASE INCREASED [None]
  - LOW DENSITY LIPOPROTEIN INCREASED [None]
  - MUSCLE RUPTURE [None]
  - MUSCULOSKELETAL DISCOMFORT [None]
